FAERS Safety Report 5227325-4 (Version None)
Quarter: 2007Q1

REPORT INFORMATION
  Report Type: 
  Country: None (occurrence: None)
  Receive Date: 20070202
  Receipt Date: 20070118
  Transmission Date: 20070707
  Serious: Yes (Hospitalization)
  Sender: FDA-Public Use
  Company Number: US-AMGEN-US207477

PATIENT
  Sex: Female

DRUGS (1)
  1. ENBREL [Suspect]
     Indication: ANKYLOSING SPONDYLITIS
     Route: 058
     Dates: start: 20031231, end: 20060701

REACTIONS (5)
  - ASTHENIA [None]
  - DYSPNOEA [None]
  - HYPERHIDROSIS [None]
  - PRESYNCOPE [None]
  - SYNCOPE [None]
